FAERS Safety Report 4879478-5 (Version None)
Quarter: 2005Q4

REPORT INFORMATION
  Report Type: 
  Country: None (occurrence: None)
  Receive Date: 20051209
  Receipt Date: 20050930
  Transmission Date: 20060501
  Serious: Yes (Death)
  Sender: FDA-Public Use
  Company Number: USA-2005-0021397

PATIENT
  Age: 55 Year
  Sex: Female
  Weight: 86.6 kg

DRUGS (4)
  1. OXYCODONE HCL [Suspect]
  2. CYCLOBENZAPRINE (CYCLOBENZAPRINE) [Suspect]
  3. OXYMORPHONE HYDROCHLORIDE [Suspect]
  4. BUTALBITAL [Suspect]

REACTIONS (1)
  - MULTIPLE DRUG OVERDOSE ACCIDENTAL [None]
